FAERS Safety Report 9239201 (Version 1)
Quarter: 2013Q2

REPORT INFORMATION
  Report Type: Other
  Country: US (occurrence: US)
  Receive Date: 20130417
  Receipt Date: 20130417
  Transmission Date: 20140414
  Serious: Yes (Other)
  Sender: FDA-Public Use
  Company Number: US-RB-052232-13

PATIENT
  Sex: Male

DRUGS (6)
  1. SUBOXONE UNSPECIFIED [Suspect]
     Indication: PRODUCT USED FOR UNKNOWN INDICATION
     Dosage: DOSING DETAILS UNKNOWN
     Route: 064
  2. NICOTINE [Suspect]
     Indication: TOBACCO USER
     Dosage: DOSING DETAILS UNKNOWN
     Route: 064
  3. AMPICILLIN [Suspect]
     Indication: PRODUCT USED FOR UNKNOWN INDICATION
     Dosage: DOSING DETAILS UNKNOWN
     Route: 065
  4. GENTAMICIN [Suspect]
     Indication: PRODUCT USED FOR UNKNOWN INDICATION
     Dosage: DOSING DETAILS UNKNOWN
     Route: 065
  5. ENFAMIL 20 [Suspect]
     Indication: PRODUCT USED FOR UNKNOWN INDICATION
     Dosage: DOSING DETAILS UNKNOWN
     Route: 048
  6. ENFAMIL 20 [Suspect]
     Dosage: NASOGATRIC FEEDING; DOSING DETAILS UNKNOWN
     Route: 050

REACTIONS (3)
  - Foetal exposure during pregnancy [Recovered/Resolved]
  - Drug withdrawal syndrome neonatal [Unknown]
  - Necrotising colitis [Unknown]
